FAERS Safety Report 8018767-2 (Version None)
Quarter: 2012Q1

REPORT INFORMATION
  Report Type: 
  Country: None (occurrence: None)
  Receive Date: 20120103
  Receipt Date: 20111227
  Transmission Date: 20120608
  Serious: Yes (Other)
  Sender: FDA-Public Use
  Company Number: US-BAYER-2011-123874

PATIENT
  Sex: Female

DRUGS (2)
  1. YAZ [Suspect]
     Dosage: UNK
     Dates: start: 20060701, end: 20081030
  2. YAZ [Suspect]
     Dosage: UNK
     Dates: start: 20090404, end: 20091017

REACTIONS (1)
  - GALLBLADDER INJURY [None]
